FAERS Safety Report 18466845 (Version 1)
Quarter: 2020Q4

REPORT INFORMATION
  Report Type: Other
  Country: IL (occurrence: IL)
  Receive Date: 20201105
  Receipt Date: 20201105
  Transmission Date: 20210114
  Serious: Yes (Life-Threatening)
  Sender: FDA-Public Use
  Company Number: IL-B.BRAUN MEDICAL INC.-2093614

PATIENT
  Sex: Female

DRUGS (1)
  1. SODIUM CHLORIDE INJECTION USP 0264-7800-09 [Suspect]
     Active Substance: SODIUM CHLORIDE

REACTIONS (1)
  - Drug ineffective [None]
